FAERS Safety Report 5262627-7 (Version None)
Quarter: 2007Q1

REPORT INFORMATION
  Report Type: 
  Country: None (occurrence: None)
  Receive Date: 20070309
  Receipt Date: 20070309
  Transmission Date: 20070707
  Serious: Yes (Hospitalization)
  Sender: FDA-Public Use
  Company Number: None

PATIENT
  Age: 62 Year
  Sex: Male
  Weight: 86 kg

DRUGS (3)
  1. ETOPOSIDE [Suspect]
     Indication: SMALL CELL LUNG CANCER STAGE UNSPECIFIED
     Dosage: 158MG  D1-3  IV
     Route: 042
     Dates: start: 20070205, end: 20070302
  2. CISPLATIN [Suspect]
     Indication: SMALL CELL LUNG CANCER STAGE UNSPECIFIED
     Dosage: 158MG  D1  IV
     Route: 042
     Dates: start: 20070205, end: 20070228
  3. CISPLATIN [Suspect]

REACTIONS (1)
  - NEUTROPENIA [None]
